FAERS Safety Report 12371993 (Version 2)
Quarter: 2016Q3

REPORT INFORMATION
  Report Type: Spontaneous
  Country: DE (occurrence: DE)
  Receive Date: 20160516
  Receipt Date: 20160824
  Transmission Date: 20161109
  Serious: Yes (Death, Other)
  Sender: FDA-Public Use
  Company Number: DE-SA-2016SA094358

PATIENT
  Age: 64 Year
  Sex: Male
  Weight: 90 kg

DRUGS (1)
  1. CLEXANE [Suspect]
     Active Substance: ENOXAPARIN SODIUM
     Indication: THROMBOSIS PROPHYLAXIS
     Dosage: STOP DATE 2016
     Route: 058
     Dates: start: 20160229, end: 20160425

REACTIONS (6)
  - Pain in extremity [Fatal]
  - Deep vein thrombosis [Unknown]
  - Peripheral swelling [Fatal]
  - Pulmonary embolism [Fatal]
  - Cough [Fatal]
  - Drug ineffective [Unknown]

NARRATIVE: CASE EVENT DATE: 20160425
